FAERS Safety Report 9033334 (Version 2)
Quarter: 2013Q2

REPORT INFORMATION
  Report Type: Report from Study
  Country: FR (occurrence: FR)
  Receive Date: 20130128
  Receipt Date: 20130611
  Transmission Date: 20140414
  Serious: Yes (Life-Threatening, Hospitalization)
  Sender: FDA-Public Use
  Company Number: FR-ROCHE-583889

PATIENT
  Age: 30 Year
  Sex: Male
  Weight: 79 kg

DRUGS (13)
  1. RITUXIMAB [Suspect]
     Indication: DIFFUSE LARGE B-CELL LYMPHOMA
     Dosage: FREQUENCY NOT REPORTED
     Route: 042
     Dates: start: 20080723, end: 20080827
  2. RITUXIMAB [Suspect]
     Dosage: PERMANENTLY STOPPED.
     Route: 042
     Dates: start: 20080910, end: 20081007
  3. DOXORUBICINE [Suspect]
     Indication: NON-HODGKIN^S LYMPHOMA
     Route: 042
     Dates: start: 20080723, end: 20080827
  4. DOXORUBICINE [Suspect]
     Dosage: PERMANENTLY STOPPED.
     Route: 042
     Dates: start: 20080910, end: 20081007
  5. CYCLOPHOSPHAMIDE [Suspect]
     Indication: NON-HODGKIN^S LYMPHOMA
     Dosage: FREQUENCY: NOT REPORTED
     Route: 042
     Dates: start: 20080723, end: 20080827
  6. CYCLOPHOSPHAMIDE [Suspect]
     Dosage: PERMANENTLY STOPPED
     Route: 042
     Dates: start: 20080910, end: 20081007
  7. VINCRISTINE [Suspect]
     Indication: NON-HODGKIN^S LYMPHOMA
     Route: 042
     Dates: start: 20080723, end: 20080827
  8. VINCRISTINE [Suspect]
     Dosage: PERMANENTLY STOPPED
     Route: 042
     Dates: start: 20080910, end: 20081007
  9. PREDNISONE [Suspect]
     Indication: NON-HODGKIN^S LYMPHOMA
     Dosage: FREQUENCY; NOT REPORTED
     Route: 048
     Dates: start: 20080724, end: 20080827
  10. PREDNISONE [Suspect]
     Dosage: DATE PRIOR TO SAE: 14/SEP/2008, PERMANENTLY STOPPED
     Route: 048
     Dates: start: 20080911, end: 20081007
  11. PREDNISONE [Suspect]
     Route: 048
     Dates: start: 20081007
  12. METHOTREXATE [Suspect]
     Indication: NON-HODGKIN^S LYMPHOMA
     Route: 042
     Dates: start: 20080724, end: 20080827
  13. METHOTREXATE [Suspect]
     Dosage: PERMANENTLY STOPPED
     Route: 042
     Dates: start: 20080910, end: 20081007

REACTIONS (4)
  - Febrile neutropenia [Recovered/Resolved]
  - Mucosal inflammation [Recovered/Resolved]
  - Sepsis [Recovered/Resolved]
  - Nephrotic syndrome [Not Recovered/Not Resolved]
